FAERS Safety Report 4422793-X (Version None)
Quarter: 2004Q3

REPORT INFORMATION
  Report Type: 
  Country: None (occurrence: None)
  Receive Date: 20040719
  Receipt Date: 20031013
  Transmission Date: 20050211
  Serious: Yes (Hospitalization, Other)
  Sender: FDA-Public Use
  Company Number: M03-INT-107

PATIENT
  Age: 82 Year
  Sex: Female

DRUGS (3)
  1. INTEGRILIN [Suspect]
     Indication: PERIPHERAL REVASCULARISATION
     Dosage: IV DRIP
     Route: 041
     Dates: start: 20031007, end: 20031007
  2. HEPARIN [Concomitant]
  3. VISIPAQUE [Concomitant]

REACTIONS (3)
  - HAEMATOMA [None]
  - HAEMOPTYSIS [None]
  - RETROPERITONEAL HAEMORRHAGE [None]
